FAERS Safety Report 21782153 (Version 1)
Quarter: 2022Q4

REPORT INFORMATION
  Report Type: Spontaneous
  Country: FR (occurrence: FR)
  Receive Date: 20221227
  Receipt Date: 20221227
  Transmission Date: 20230113
  Serious: Yes (Hospitalization, Other)
  Sender: FDA-Public Use
  Company Number: FR-MYLANLABS-2022M1144753

PATIENT
  Age: 75 Year
  Sex: Male

DRUGS (7)
  1. PACLITAXEL [Interacting]
     Active Substance: PACLITAXEL
     Indication: Adenocarcinoma pancreas
     Dosage: 230 MILLIGRAM
     Route: 065
  2. WARFARIN [Interacting]
     Active Substance: WARFARIN
     Indication: Arrhythmia
     Dosage: 5 MILLIGRAM, QD
     Route: 048
  3. VISCUM ALBUM FRUITING TOP [Interacting]
     Active Substance: VISCUM ALBUM FRUITING TOP
     Indication: Pancreatic carcinoma metastatic
     Dosage: 10 MILLIGRAM, QD; SUBCUTANEOUS USE; ADMINISTERED AT D0 AND D2
     Route: 058
  4. GEMCITABINE [Interacting]
     Active Substance: GEMCITABINE
     Indication: Pancreatic carcinoma metastatic
     Dosage: 1800 MILLIGRAM
     Route: 065
  5. ASPIRIN DL-LYSINE [Concomitant]
     Active Substance: ASPIRIN DL-LYSINE
     Indication: Myocardial ischaemia
     Dosage: 75 MILLIGRAM, QD
     Route: 048
  6. AMIODARONE HYDROCHLORIDE [Concomitant]
     Active Substance: AMIODARONE HYDROCHLORIDE
     Indication: Arrhythmia
     Dosage: 200 MILLIGRAM, QD
     Route: 048
  7. BISOPROLOL FUMARATE [Concomitant]
     Active Substance: BISOPROLOL FUMARATE
     Indication: Arrhythmia
     Dosage: 5 MILLIGRAM, QD
     Route: 048

REACTIONS (4)
  - Gastrointestinal haemorrhage [Recovered/Resolved]
  - Drug interaction [Recovered/Resolved]
  - Anticoagulation drug level increased [Unknown]
  - Neuropathy peripheral [Unknown]
